FAERS Safety Report 8422487 (Version 2)
Quarter: 2019Q4

REPORT INFORMATION
  Report Type: Spontaneous
  Country: DE (occurrence: DE)
  Receive Date: 20120223
  Receipt Date: 20191023
  Transmission Date: 20200122
  Serious: Yes (Hospitalization, Congenital Anomaly, Other)
  Sender: FDA-Public Use
  Company Number: DE-UCBSA-051267

PATIENT
  Sex: Female
  Weight: 1.97 kg

DRUGS (5)
  1. KEPPRA [Suspect]
     Active Substance: LEVETIRACETAM
     Indication: EPILEPSY
     Dosage: 1000 MG DAILY
     Route: 064
     Dates: start: 20101009, end: 20110511
  2. MARCUMAR [Suspect]
     Active Substance: PHENPROCOUMON
     Indication: THROMBOSIS PROPHYLAXIS
     Dosage: 0-4 GESTATIONAL WEEK
     Route: 064
     Dates: end: 2010
  3. BETAMETHASONE. [Suspect]
     Active Substance: BETAMETHASONE
     Indication: MATERNAL THERAPY TO ENHANCE FOETAL LUNG MATURITY
     Dosage: 32.1-32.2 GESTATIONAL WEEK
     Route: 064
     Dates: start: 20110508, end: 20110509
  4. FOLASAURE (FOLIC ACID) [Suspect]
     Active Substance: FOLIC ACID
     Indication: PROPHYLAXIS OF NEURAL TUBE DEFECT
     Dosage: 4-12 GESTATIONAL WEEK
     Route: 064
     Dates: start: 2010, end: 2010
  5. CLEXANE [Suspect]
     Active Substance: ENOXAPARIN SODIUM
     Indication: THROMBOSIS PROPHYLAXIS
     Dosage: DAILY DOSE:40MG; 4-32.4 GESTATIONAL WEEK
     Route: 064
     Dates: start: 2010, end: 20110511

REACTIONS (5)
  - Facial paresis [Not Recovered/Not Resolved]
  - Maternal exposure before pregnancy [Unknown]
  - Premature baby [Recovered/Resolved]
  - Ileal atresia [Recovered/Resolved with Sequelae]
  - Low birth weight baby [Unknown]

NARRATIVE: CASE EVENT DATE: 20101009
